FAERS Safety Report 9536861 (Version 2)
Quarter: 2013Q4

REPORT INFORMATION
  Report Type: Report from Study
  Country: NL (occurrence: NL)
  Receive Date: 20130919
  Receipt Date: 20131028
  Transmission Date: 20140711
  Serious: Yes (Death, Hospitalization)
  Sender: FDA-Public Use
  Company Number: NL-BAYER-2013-112258

PATIENT
  Sex: Male

DRUGS (1)
  1. REGORAFENIB [Suspect]
     Indication: COLORECTAL CANCER
     Dosage: TOTAL DAILY DOSE 160MG
     Route: 048
     Dates: start: 20130903, end: 20130910

REACTIONS (1)
  - Abdominal pain [Fatal]
